FAERS Safety Report 22263945 (Version 1)
Quarter: 2023Q2

REPORT INFORMATION
  Report Type: Spontaneous
  Country: CN (occurrence: CN)
  Receive Date: 20230428
  Receipt Date: 20230428
  Transmission Date: 20230722
  Serious: Yes (Hospitalization, Other)
  Sender: FDA-Public Use
  Company Number: None

PATIENT
  Age: 40 Year
  Sex: Female
  Weight: 45.8 kg

DRUGS (6)
  1. CYCLOPHOSPHAMIDE [Suspect]
     Active Substance: CYCLOPHOSPHAMIDE
     Indication: Invasive breast carcinoma
     Dosage: 0.882 G, QD, D1, DILUTED WITH 250 ML OF SODIUM CHLORIDE, FIRST CHEMOTHERAPY
     Route: 041
     Dates: start: 20230131, end: 20230131
  2. CYCLOPHOSPHAMIDE [Suspect]
     Active Substance: CYCLOPHOSPHAMIDE
     Indication: Breast cancer stage II
  3. EPIRUBICIN [Suspect]
     Active Substance: EPIRUBICIN
     Indication: Invasive breast carcinoma
     Dosage: 147 MG, QD, D1, DILUTED WITH 100 ML OF SODIUM CHLORIDE, FIRST CHEMOTHERAPY
     Route: 041
     Dates: start: 20230131, end: 20230131
  4. EPIRUBICIN [Suspect]
     Active Substance: EPIRUBICIN
     Indication: Breast cancer stage II
  5. SODIUM CHLORIDE [Suspect]
     Active Substance: SODIUM CHLORIDE
     Indication: Medication dilution
     Dosage: 250 ML, QD, D1, USED TO DILUTE 0.882 G CYCLOPHOSPHAMIDE
     Route: 041
     Dates: start: 20230131, end: 20230131
  6. SODIUM CHLORIDE [Suspect]
     Active Substance: SODIUM CHLORIDE
     Dosage: 100 ML, QD, D1, USED TO DILUTE 147 MG PHARMARUBICIN
     Route: 041
     Dates: start: 20230131, end: 20230131

REACTIONS (6)
  - Lymphadenitis [Recovering/Resolving]
  - White blood cell count decreased [Recovering/Resolving]
  - Neutrophil count decreased [Recovering/Resolving]
  - Haemoglobin decreased [Recovering/Resolving]
  - Myelosuppression [Recovering/Resolving]
  - Pyrexia [Recovered/Resolved]

NARRATIVE: CASE EVENT DATE: 20230209
